FAERS Safety Report 22037078 (Version 1)
Quarter: 2023Q1

REPORT INFORMATION
  Report Type: Spontaneous
  Country: US (occurrence: None)
  Receive Date: 20230223
  Receipt Date: 20230223
  Transmission Date: 20230418
  Serious: Yes (Other)
  Sender: FDA-Public Use
  Company Number: None

PATIENT
  Sex: Female

DRUGS (14)
  1. HUMIRA [Suspect]
     Active Substance: ADALIMUMAB
     Indication: Psoriasis
     Dosage: OTHER QUANTITY : 40 MG/0.4ML;?
     Route: 058
     Dates: start: 20220722
  2. ALBUTEROL AER HFA [Concomitant]
  3. BACLOFEN [Concomitant]
     Active Substance: BACLOFEN
  4. BUSPIRONE [Concomitant]
     Active Substance: BUSPIRONE HYDROCHLORIDE
  5. CELECOXIB [Concomitant]
     Active Substance: CELECOXIB
  6. CLOBETASOL CRE [Concomitant]
  7. DIAZEPAM [Concomitant]
     Active Substance: DIAZEPAM
  8. FERROUS SULFATE [Concomitant]
     Active Substance: FERROUS SULFATE
  9. GABAPENTIN [Concomitant]
     Active Substance: GABAPENTIN
  10. HYDROXYCHLOROQUINE [Concomitant]
     Active Substance: HYDROXYCHLOROQUINE
  11. OTEZLA [Concomitant]
     Active Substance: APREMILAST
  12. SERTRALINE [Concomitant]
     Active Substance: SERTRALINE HYDROCHLORIDE
  13. TRIAMCINOLON [Concomitant]
  14. VITAMIN D [Concomitant]
     Active Substance: VITAMIN D NOS

REACTIONS (3)
  - Psoriasis [None]
  - Discomfort [None]
  - Depression [None]
